FAERS Safety Report 6371559-2 (Version None)
Quarter: 2009Q3

REPORT INFORMATION
  Report Type: 
  Country: None (occurrence: None)
  Receive Date: 20090923
  Receipt Date: 20080118
  Transmission Date: 20100115
  Serious: Yes (Hospitalization)
  Sender: FDA-Public Use
  Company Number: US-ASTRAZENECA-2007UW19711

PATIENT
  Age: 20242 Day
  Sex: Male
  Weight: 71.4 kg

DRUGS (13)
  1. SEROQUEL [Suspect]
     Indication: BIPOLAR DISORDER
     Dosage: 50 MG TO 400 MG DAILY AT NIGHT
     Route: 048
     Dates: start: 20051111
  2. SEROQUEL [Suspect]
     Dosage: 100 MG, 200 MG
     Route: 048
     Dates: start: 20051212, end: 20070208
  3. SEROQUEL [Suspect]
     Dosage: 200 MG, 300 MG
     Route: 048
     Dates: start: 20070208
  4. RISPERDAL [Concomitant]
     Dates: start: 20060101
  5. HALDOL [Concomitant]
     Dates: start: 19780101
  6. THORAZINE [Concomitant]
     Dates: start: 19710101, end: 19730101
  7. LITHIUM [Concomitant]
     Dosage: VARIOUS DOSES
     Dates: start: 19790101, end: 20050101
  8. IMIPRAMINE [Concomitant]
     Dates: start: 20050401, end: 20061201
  9. LIPITOR [Concomitant]
     Dates: start: 20011025
  10. MICARDIS [Concomitant]
     Dates: start: 20051129
  11. TRICOR [Concomitant]
     Dates: start: 20051108
  12. LOPID [Concomitant]
     Dates: start: 20010117
  13. PREVACID [Concomitant]
     Dates: start: 20040511

REACTIONS (3)
  - PANCREATITIS [None]
  - RENAL DISORDER [None]
  - TYPE 2 DIABETES MELLITUS [None]
